FAERS Safety Report 11891659 (Version 3)
Quarter: 2016Q1

REPORT INFORMATION
  Report Type: Spontaneous
  Country: US (occurrence: US)
  Receive Date: 20160106
  Receipt Date: 20160323
  Transmission Date: 20160526
  Serious: Yes (Hospitalization, Other)
  Sender: FDA-Public Use
  Company Number: US-BEH-2015057425

PATIENT
  Age: 58 Year
  Sex: Female
  Weight: 67 kg

DRUGS (26)
  1. SODIUM CHLORIDE. [Concomitant]
     Active Substance: SODIUM CHLORIDE
  2. ZEMAIRA [Suspect]
     Active Substance: .ALPHA.1-PROTEINASE INHIBITOR HUMAN
     Indication: ALPHA-1 ANTI-TRYPSIN DEFICIENCY
     Dosage: 1005 MG/VL
     Route: 042
     Dates: start: 20090722
  3. CLARITIN [Concomitant]
     Active Substance: LORATADINE
  4. PREDNISONE. [Concomitant]
     Active Substance: PREDNISONE
  5. LIDOCAINE/PRILOCAINE [Concomitant]
  6. TYLENOL EXTRA STRENGTH [Concomitant]
     Active Substance: ACETAMINOPHEN
  7. PAXIL [Concomitant]
     Active Substance: PAROXETINE HYDROCHLORIDE
  8. OXYGEN. [Concomitant]
     Active Substance: OXYGEN
  9. CALTRATE WITH VITAMIN D [Concomitant]
     Active Substance: CALCIUM CARBONATE\CHOLECALCIFEROL
  10. ALKA-SELTZER ES [Concomitant]
  11. HYDROXYZINE HYDROCHLORIDE. [Concomitant]
     Active Substance: HYDROXYZINE HYDROCHLORIDE
  12. ZEMAIRA [Suspect]
     Active Substance: .ALPHA.1-PROTEINASE INHIBITOR HUMAN
     Dosage: 1036 MG VIAL/1048 MG/VL; THERAPY DISCONTINUED ??-FEB-2016
     Route: 042
     Dates: start: 20100104
  13. MAGNESIUM [Concomitant]
     Active Substance: MAGNESIUM
  14. EPIPEN [Concomitant]
     Active Substance: EPINEPHRINE
  15. PROAIR HFA [Concomitant]
     Active Substance: ALBUTEROL SULFATE
  16. PRILOSEC [Concomitant]
     Active Substance: OMEPRAZOLE MAGNESIUM
  17. TRIAMCINOLONE [Concomitant]
     Active Substance: TRIAMCINOLONE
  18. HEPARIN [Concomitant]
     Active Substance: HEPARIN SODIUM
  19. TYLENOL SINUS [Concomitant]
     Active Substance: ACETAMINOPHEN\DIPHENHYDRAMINE
  20. POTASSIUM GLUCONATE [Concomitant]
     Active Substance: POTASSIUM GLUCONATE
  21. HALOBETASOL PROPIONATE. [Concomitant]
     Active Substance: HALOBETASOL PROPIONATE
  22. DIPHENHYDRAMINE. [Concomitant]
     Active Substance: DIPHENHYDRAMINE
  23. ALBUTEROL. [Concomitant]
     Active Substance: ALBUTEROL
  24. FISH OIL [Concomitant]
     Active Substance: FISH OIL
  25. PULMICORT TURBUHALER [Concomitant]
     Active Substance: BUDESONIDE
  26. MUCINEX [Concomitant]
     Active Substance: GUAIFENESIN

REACTIONS (10)
  - Pruritus [Unknown]
  - Dyspnoea [Unknown]
  - Headache [Unknown]
  - Chills [Unknown]
  - Stevens-Johnson syndrome [Unknown]
  - Rash [Unknown]
  - Fungal infection [Unknown]
  - Acute respiratory distress syndrome [Unknown]
  - Furuncle [Unknown]
  - Blister [Unknown]

NARRATIVE: CASE EVENT DATE: 201512
